FAERS Safety Report 19361272 (Version 1)
Quarter: 2021Q2

REPORT INFORMATION
  Report Type: Other
  Country: US (occurrence: US)
  Receive Date: 20210601
  Receipt Date: 20210601
  Transmission Date: 20210717
  Serious: Yes (Other)
  Sender: FDA-Public Use
  Company Number: US-ROCHE-2841096

PATIENT
  Age: 85 Year
  Sex: Male

DRUGS (5)
  1. BEVACIZUMAB. [Suspect]
     Active Substance: BEVACIZUMAB
     Indication: DIABETIC RETINOPATHY
     Dosage: 1.25 MG/0.05 CC
     Route: 050
  2. DIFLUPREDNATE [Concomitant]
     Active Substance: DIFLUPREDNATE
  3. PREDNISONE. [Concomitant]
     Active Substance: PREDNISONE
     Dosage: MAINTENANCE DOSE
  4. PREDNISONE. [Concomitant]
     Active Substance: PREDNISONE
  5. INFLIXIMAB [Concomitant]
     Active Substance: INFLIXIMAB

REACTIONS (5)
  - Pupillary reflex impaired [Unknown]
  - Venous occlusion [Unknown]
  - Anterior chamber inflammation [Unknown]
  - Retinal exudates [Unknown]
  - Retinal haemorrhage [Unknown]
